FAERS Safety Report 16510543 (Version 2)
Quarter: 2019Q3

REPORT INFORMATION
  Report Type: Report from Study
  Country: US (occurrence: US)
  Receive Date: 20190701
  Receipt Date: 20190715
  Transmission Date: 20191004
  Serious: Yes (Hospitalization, Other)
  Sender: FDA-Public Use
  Company Number: US-GILEAD-2019-0414680

PATIENT
  Age: 60 Year
  Sex: Female
  Weight: 60.1 kg

DRUGS (10)
  1. BLINDED IDELALISIB [Suspect]
     Active Substance: IDELALISIB
     Indication: BONE MARROW TRANSPLANT
     Dosage: 100 MG, BID
     Route: 048
     Dates: start: 20181015, end: 20190416
  2. BENADRYL [Concomitant]
     Active Substance: DIPHENHYDRAMINE HYDROCHLORIDE
     Dosage: UNK, PRN
  3. ZOFRAN [Concomitant]
     Active Substance: ONDANSETRON HYDROCHLORIDE
  4. IMMUNOGLOBULIN HUMAN NORMAL [Concomitant]
     Active Substance: HUMAN IMMUNOGLOBULIN G
     Dosage: UNK, Q1MONTH
     Route: 042
  5. IBUPROFEN. [Concomitant]
     Active Substance: IBUPROFEN
  6. BLINDED PLACEBO [Suspect]
     Active Substance: INVESTIGATIONAL PRODUCT
     Indication: BONE MARROW TRANSPLANT
     Dosage: 100 MG, BID
     Route: 048
     Dates: start: 20181015, end: 20190416
  7. ACYCLOVIR [ACICLOVIR] [Concomitant]
     Active Substance: ACYCLOVIR
     Dosage: 800 MG, BID
  8. ATIVAN [Concomitant]
     Active Substance: LORAZEPAM
  9. IMITREX [Concomitant]
     Active Substance: SUMATRIPTAN SUCCINATE
  10. ATOVAQUONE. [Concomitant]
     Active Substance: ATOVAQUONE

REACTIONS (6)
  - Graft versus host disease [Unknown]
  - Transaminases increased [Recovered/Resolved]
  - Pruritus generalised [Unknown]
  - Oral pain [Unknown]
  - Vulvovaginal dryness [Unknown]
  - Dyspnoea [Unknown]

NARRATIVE: CASE EVENT DATE: 20190618
